FAERS Safety Report 15481259 (Version 1)
Quarter: 2018Q4

REPORT INFORMATION
  Report Type: Spontaneous
  Country: BR (occurrence: BR)
  Receive Date: 20181010
  Receipt Date: 20181010
  Transmission Date: 20190205
  Serious: Yes (Other)
  Sender: FDA-Public Use
  Company Number: BR-SUN PHARMACEUTICAL INDUSTRIES LTD-2018RR-186653

PATIENT
  Age: 51 Year
  Sex: Female

DRUGS (7)
  1. CISATRACURIUM. [Concomitant]
     Active Substance: CISATRACURIUM
     Indication: INDUCTION OF ANAESTHESIA
     Route: 065
  2. BUPIVACAINE. [Concomitant]
     Active Substance: BUPIVACAINE
     Indication: INDUCTION OF ANAESTHESIA
     Route: 065
  3. MORPHINE [Suspect]
     Active Substance: MORPHINE
     Indication: INDUCTION OF ANAESTHESIA
     Route: 065
  4. KETAMINE [Concomitant]
     Active Substance: KETAMINE
     Indication: INDUCTION OF ANAESTHESIA
     Route: 065
  5. TRAMADOL. [Suspect]
     Active Substance: TRAMADOL
     Indication: PRODUCT USED FOR UNKNOWN INDICATION
     Dosage: 50 MG, UNK
     Route: 065
  6. PROPOFOL. [Concomitant]
     Active Substance: PROPOFOL
     Indication: INDUCTION OF ANAESTHESIA
     Route: 065
  7. FENTANYL. [Concomitant]
     Active Substance: FENTANYL
     Indication: INDUCTION OF ANAESTHESIA
     Route: 065

REACTIONS (2)
  - Cardio-respiratory arrest [Recovered/Resolved]
  - Anaphylactic reaction [Unknown]
